FAERS Safety Report 7440304-1 (Version None)
Quarter: 2011Q2

REPORT INFORMATION
  Report Type: 
  Country: None (occurrence: None)
  Receive Date: 20110427
  Receipt Date: 20110119
  Transmission Date: 20111010
  Serious: Yes (Other)
  Sender: FDA-Public Use
  Company Number: PHHY2011ES05473

PATIENT
  Age: 52 Year
  Sex: Female

DRUGS (1)
  1. SULFAMETHOXAZOLE TRIMETHOPRIM [Suspect]

REACTIONS (12)
  - URTICARIA [None]
  - HYPOTENSION [None]
  - ABDOMINAL PAIN [None]
  - GENERALISED ERYTHEMA [None]
  - METRORRHAGIA [None]
  - WHEEZING [None]
  - VAGINAL HAEMORRHAGE [None]
  - NAUSEA [None]
  - DIZZINESS [None]
  - ANAPHYLACTIC REACTION [None]
  - RHINITIS [None]
  - DIARRHOEA [None]
